FAERS Safety Report 24824433 (Version 2)
Quarter: 2025Q1

REPORT INFORMATION
  Report Type: Spontaneous
  Country: US (occurrence: US)
  Receive Date: 20250109
  Receipt Date: 20250120
  Transmission Date: 20250409
  Serious: Yes (Hospitalization, Other)
  Sender: ADVANZ PHARMA
  Company Number: US-MLMSERVICE-20241226-PI324312-00095-1

PATIENT

DRUGS (1)
  1. HYDROXYCHLOROQUINE [Suspect]
     Active Substance: HYDROXYCHLOROQUINE
     Indication: Systemic lupus erythematosus
     Route: 065

REACTIONS (2)
  - Oesophagitis ulcerative [Unknown]
  - Chest pain [Recovering/Resolving]
